FAERS Safety Report 4275826-8 (Version None)
Quarter: 2004Q1

REPORT INFORMATION
  Report Type: 
  Country: None (occurrence: None)
  Receive Date: 20040121
  Receipt Date: 20020926
  Transmission Date: 20041129
  Serious: No
  Sender: FDA-Public Use
  Company Number: US-GLAXOSMITHKLINE-A0381822A

PATIENT
  Age: 41 Year
  Sex: Female

DRUGS (2)
  1. VALTREX [Suspect]
     Dosage: 500MG SEE DOSAGE TEXT
     Route: 048
  2. NO CONCURRENT MEDICATIONS [Concomitant]

REACTIONS (4)
  - DIZZINESS [None]
  - DYSPEPSIA [None]
  - HEADACHE [None]
  - HERPES VIRUS INFECTION [None]
